FAERS Safety Report 10547770 (Version 1)
Quarter: 2014Q4

REPORT INFORMATION
  Report Type: Spontaneous
  Country: US (occurrence: None)
  Receive Date: 20141024
  Receipt Date: 20141024
  Transmission Date: 20150529
  Serious: Yes (Other)
  Sender: FDA-Public Use
  Company Number: None

PATIENT
  Age: 44 Year
  Sex: Male
  Weight: 107.96 kg

DRUGS (1)
  1. PROTONIX [Suspect]
     Active Substance: PANTOPRAZOLE SODIUM
     Indication: EOSINOPHILIC OESOPHAGITIS
     Route: 048
     Dates: start: 20140826, end: 20141024

REACTIONS (1)
  - Muscle spasms [None]

NARRATIVE: CASE EVENT DATE: 20141024
